FAERS Safety Report 6794780-8 (Version None)
Quarter: 2010Q2

REPORT INFORMATION
  Report Type: 
  Country: None (occurrence: None)
  Receive Date: 20100624
  Receipt Date: 20100624
  Transmission Date: 20101027
  Serious: Yes (Hospitalization)
  Sender: FDA-Public Use
  Company Number: None

PATIENT
  Sex: Male
  Weight: 11.3944 kg

DRUGS (1)
  1. PFIZERPEN [Suspect]
     Indication: OSTEOMYELITIS
     Dosage: 3 MILLION UNITS EVERY 6 HOURS IV
     Route: 042
     Dates: start: 20100618, end: 20100621

REACTIONS (3)
  - BODY TEMPERATURE INCREASED [None]
  - RASH [None]
  - URTICARIA [None]
